FAERS Safety Report 14254989 (Version 1)
Quarter: 2017Q4

REPORT INFORMATION
  Report Type: Spontaneous
  Country: US (occurrence: None)
  Receive Date: 20171205
  Receipt Date: 20171205
  Transmission Date: 20180321
  Serious: No
  Sender: FDA-Public Use
  Company Number: None

PATIENT
  Age: 31 Year
  Sex: Female

DRUGS (1)
  1. CYCLOSPORINE CAP 100MG MD [Suspect]
     Active Substance: CYCLOSPORINE

REACTIONS (7)
  - Chest discomfort [None]
  - Diarrhoea [None]
  - Dyspnoea [None]
  - Wheezing [None]
  - Speech disorder [None]
  - Feeling abnormal [None]
  - Flatulence [None]

NARRATIVE: CASE EVENT DATE: 20171130
